FAERS Safety Report 8052833-0 (Version None)
Quarter: 2012Q1

REPORT INFORMATION
  Report Type: 
  Country: None (occurrence: None)
  Receive Date: 20120118
  Receipt Date: 20120116
  Transmission Date: 20120608
  Serious: Yes (Hospitalization)
  Sender: FDA-Public Use
  Company Number: PHHY2011US16105

PATIENT
  Sex: Female
  Weight: 53 kg

DRUGS (11)
  1. EXJADE [Suspect]
     Indication: IRON OVERLOAD
     Dosage: 1500 MG DAILY
     Route: 048
     Dates: start: 20080201
  2. ZONEGRAN [Concomitant]
  3. PREDNISONE TAB [Concomitant]
  4. VITAMIN D [Concomitant]
  5. KEPPRA [Concomitant]
  6. PRILOSEC [Concomitant]
  7. LEVAQUIN [Concomitant]
  8. CALCIUM [Concomitant]
  9. ASCORBIC ACID [Concomitant]
  10. TRILEPTAL [Concomitant]
  11. MIRALAX [Concomitant]

REACTIONS (8)
  - MUSCULOSKELETAL CHEST PAIN [None]
  - URINARY INCONTINENCE [None]
  - HEADACHE [None]
  - SICKLE CELL ANAEMIA WITH CRISIS [None]
  - CONSTIPATION [None]
  - DIARRHOEA [None]
  - PNEUMONIA [None]
  - BACK PAIN [None]
